FAERS Safety Report 6892490-X (Version None)
Quarter: 2010Q3

REPORT INFORMATION
  Report Type: 
  Country: None (occurrence: None)
  Receive Date: 20100731
  Receipt Date: 20080626
  Transmission Date: 20110219
  Serious: No
  Sender: FDA-Public Use
  Company Number: US-PFIZER INC-2008033274

PATIENT
  Sex: Female
  Weight: 58.97 kg

DRUGS (2)
  1. NORVASC [Suspect]
     Indication: HYPERTENSION
     Dates: start: 20040101, end: 20080322
  2. ATENOLOL [Concomitant]

REACTIONS (7)
  - ARTHRALGIA [None]
  - CONSTIPATION [None]
  - MYALGIA [None]
  - PAIN IN EXTREMITY [None]
  - PALPITATIONS [None]
  - POLLAKIURIA [None]
  - SLEEP DISORDER [None]
